FAERS Safety Report 10083025 (Version 1)
Quarter: 2014Q2

REPORT INFORMATION
  Report Type: Spontaneous
  Country: US (occurrence: US)
  Receive Date: 20140417
  Receipt Date: 20140417
  Transmission Date: 20141212
  Serious: No
  Sender: FDA-Public Use
  Company Number: US-BIOGENIDEC-2014BI033520

PATIENT
  Age: 43 Year
  Sex: Female

DRUGS (7)
  1. TYSABRI [Suspect]
     Indication: MULTIPLE SCLEROSIS
     Route: 042
     Dates: start: 20090727
  2. AVONEX [Concomitant]
     Indication: MULTIPLE SCLEROSIS
     Route: 030
  3. AVONEX [Concomitant]
     Indication: MULTIPLE SCLEROSIS
     Route: 030
     Dates: start: 20050616
  4. METFORMIN HCL [Concomitant]
     Route: 048
  5. SIMVASTATIN [Concomitant]
     Route: 048
  6. ZYRTEC [Concomitant]
     Route: 048
  7. VITAMIN D2 [Concomitant]

REACTIONS (8)
  - Gait disturbance [Unknown]
  - Vision blurred [Unknown]
  - Depression [Unknown]
  - Anxiety [Unknown]
  - Central nervous system lesion [Unknown]
  - Blood glucose increased [Unknown]
  - Visual impairment [Unknown]
  - Fatigue [Unknown]
